FAERS Safety Report 11964653 (Version 3)
Quarter: 2017Q1

REPORT INFORMATION
  Report Type: Spontaneous
  Country: JP (occurrence: JP)
  Receive Date: 20160127
  Receipt Date: 20170123
  Transmission Date: 20170428
  Serious: Yes (Hospitalization, Other)
  Sender: FDA-Public Use
  Company Number: JP-SUN PHARMACEUTICAL INDUSTRIES LTD-2016R1-110085

PATIENT
  Age: 70 Year
  Sex: Male

DRUGS (10)
  1. DOXORUBICIN [Suspect]
     Active Substance: DOXORUBICIN
     Indication: METASTASES TO LUNG
     Dosage: UNK
     Route: 065
     Dates: start: 2012
  2. DOXORUBICIN [Suspect]
     Active Substance: DOXORUBICIN
     Indication: PLEOMORPHIC MALIGNANT FIBROUS HISTIOCYTOMA
  3. ETOPOSIDE. [Suspect]
     Active Substance: ETOPOSIDE
     Indication: METASTASES TO LUNG
     Dosage: UNK
     Route: 065
     Dates: start: 201208
  4. ETOPOSIDE. [Suspect]
     Active Substance: ETOPOSIDE
     Indication: PLEOMORPHIC MALIGNANT FIBROUS HISTIOCYTOMA
  5. DOCETAXEL. [Suspect]
     Active Substance: DOCETAXEL
     Indication: METASTASES TO LUNG
     Dosage: 80 MG/M2, DAY 1
     Route: 065
     Dates: start: 201211
  6. DOCETAXEL. [Suspect]
     Active Substance: DOCETAXEL
     Indication: PLEOMORPHIC MALIGNANT FIBROUS HISTIOCYTOMA
  7. GEMCITABINE [Suspect]
     Active Substance: GEMCITABINE\GEMCITABINE HYDROCHLORIDE
     Indication: PLEOMORPHIC MALIGNANT FIBROUS HISTIOCYTOMA
  8. IFOSFAMIDE. [Suspect]
     Active Substance: IFOSFAMIDE
     Indication: METASTASES TO LUNG
     Dosage: UNK
     Route: 065
     Dates: start: 2012
  9. GEMCITABINE [Suspect]
     Active Substance: GEMCITABINE\GEMCITABINE HYDROCHLORIDE
     Indication: METASTASES TO LUNG
     Dosage: 800 MG/M2, DAY 1 AND 8
     Route: 065
     Dates: start: 201211
  10. IFOSFAMIDE. [Suspect]
     Active Substance: IFOSFAMIDE
     Indication: PLEOMORPHIC MALIGNANT FIBROUS HISTIOCYTOMA

REACTIONS (3)
  - Pneumothorax [Unknown]
  - Disease progression [Recovering/Resolving]
  - Neutropenia [Unknown]
